FAERS Safety Report 24537881 (Version 1)
Quarter: 2024Q4

REPORT INFORMATION
  Report Type: Report from Study
  Country: CA (occurrence: CA)
  Receive Date: 20241023
  Receipt Date: 20241023
  Transmission Date: 20250115
  Serious: No
  Sender: JOHNSON AND JOHNSON
  Company Number: CA-JNJFOC-20241004917

PATIENT
  Age: 51 Year
  Sex: Male

DRUGS (1)
  1. TREMFYA [Suspect]
     Active Substance: GUSELKUMAB
     Indication: Psoriasis
     Route: 058
     Dates: start: 20240711

REACTIONS (4)
  - Needle issue [Unknown]
  - Accidental exposure to product [Unknown]
  - Underdose [Unknown]
  - Irritability [Unknown]
